FAERS Safety Report 17598149 (Version 1)
Quarter: 2020Q1

REPORT INFORMATION
  Report Type: Spontaneous
  Country: ES (occurrence: ES)
  Receive Date: 20200330
  Receipt Date: 20200330
  Transmission Date: 20200409
  Serious: Yes (Other)
  Sender: FDA-Public Use
  Company Number: ES-ACCORD-177325

PATIENT
  Age: 52 Year
  Sex: Male

DRUGS (7)
  1. PREDNISOLONE. [Concomitant]
     Active Substance: PREDNISOLONE
     Dosage: 10MG/ML STARTING 6 TIMES DAILY AND TAPERED 1 DROP PER WEEK
     Route: 047
     Dates: start: 2012
  2. HYALURONIC ACID [Concomitant]
     Active Substance: HYALURONIC ACID
     Dosage: 10 MG/ML INTO THE ANTERIOR CHAMBER
     Route: 047
     Dates: start: 20120905, end: 20120905
  3. MITOMYCIN. [Suspect]
     Active Substance: MITOMYCIN
     Indication: SCAR
     Dosage: APPLIED FOR 90 S
     Route: 047
     Dates: start: 20120905, end: 20120905
  4. MOXIFLOXACIN/MOXIFLOXACIN HYDROCHLORIDE [Suspect]
     Active Substance: MOXIFLOXACIN
     Indication: PROPHYLAXIS
     Dosage: 0.1ML OF 5MG/ML, 5MG/ML 1 DROP 4 TIMES DAILY FOR TEN DAYS
     Route: 031
     Dates: start: 20120905, end: 20120905
  5. MOXIFLOXACIN/MOXIFLOXACIN HYDROCHLORIDE [Suspect]
     Active Substance: MOXIFLOXACIN
     Indication: PROPHYLAXIS
     Dosage: 1 DROP 4 TIMES DAILY FOR TEN DAYS
     Route: 061
     Dates: start: 20120906, end: 20120915
  6. DICLOFENAC [Concomitant]
     Active Substance: DICLOFENAC
     Dosage: 1MG/ML 1 DROP THREE TIMES DAILY FOR TWO WEEKS
     Route: 047
     Dates: start: 2012
  7. PREDNISOLONE. [Concomitant]
     Active Substance: PREDNISOLONE
     Dosage: 10MG/ML STARTING 6 TIMES DAILY AND TAPERED 1 DROP PER WEEK
     Route: 047
     Dates: start: 2012

REACTIONS (4)
  - Iris hypopigmentation [Recovered/Resolved]
  - Pupillary disorder [Not Recovered/Not Resolved]
  - Anterior chamber pigmentation [Recovered/Resolved]
  - Mydriasis [Recovered/Resolved]

NARRATIVE: CASE EVENT DATE: 20121002
